FAERS Safety Report 10044939 (Version 1)
Quarter: 2014Q1

REPORT INFORMATION
  Report Type: Spontaneous
  Country: DE (occurrence: DE)
  Receive Date: 20140328
  Receipt Date: 20140328
  Transmission Date: 20141002
  Serious: Yes (Hospitalization)
  Sender: FDA-Public Use
  Company Number: DE-GLAXOSMITHKLINE-D0082594A

PATIENT
  Sex: Male

DRUGS (1)
  1. AVAMYS [Suspect]
     Indication: NASAL POLYPS
     Dosage: 2PUFF PER DAY
     Route: 045

REACTIONS (4)
  - Blood creatine phosphokinase increased [Recovered/Resolved]
  - Asthenia [Recovered/Resolved]
  - Pain in extremity [Recovered/Resolved]
  - Malaise [Unknown]
